FAERS Safety Report 20883501 (Version 1)
Quarter: 2022Q2

REPORT INFORMATION
  Report Type: Spontaneous
  Country: FI (occurrence: FI)
  Receive Date: 20220527
  Receipt Date: 20220527
  Transmission Date: 20220721
  Serious: Yes (Other)
  Sender: FDA-Public Use
  Company Number: FI-SA-SAC20220509001320

PATIENT
  Age: 86 Year
  Sex: Female

DRUGS (5)
  1. TOUJEO [Suspect]
     Active Substance: INSULIN GLARGINE
     Indication: Type 2 diabetes mellitus
     Dosage: 64 IU, QD
     Route: 058
  2. TOUJEO [Suspect]
     Active Substance: INSULIN GLARGINE
     Dosage: 66 IU, QD
     Route: 058
  3. TOUJEO [Suspect]
     Active Substance: INSULIN GLARGINE
     Dosage: 90 IU, QD
  4. TOUJEO [Suspect]
     Active Substance: INSULIN GLARGINE
     Dosage: 66 IU, QD
     Route: 058
  5. APIDRA [Concomitant]
     Active Substance: INSULIN GLULISINE
     Dosage: 3 MMOL, BID
     Dates: start: 2021

REACTIONS (5)
  - Macular degeneration [Unknown]
  - Blood glucose fluctuation [Not Recovered/Not Resolved]
  - Visual impairment [Not Recovered/Not Resolved]
  - Blood glucose increased [Unknown]
  - Blood glucose decreased [Unknown]

NARRATIVE: CASE EVENT DATE: 20210101
